FAERS Safety Report 5090690-5 (Version None)
Quarter: 2006Q3

REPORT INFORMATION
  Report Type: 
  Country: None (occurrence: None)
  Receive Date: 20060822
  Receipt Date: 20060809
  Transmission Date: 20061208
  Serious: Yes (Other)
  Sender: FDA-Public Use
  Company Number: HQWYE550121APR04

PATIENT
  Sex: Female

DRUGS (4)
  1. EFFEXOR [Suspect]
     Dosage: ^INCREASED DOSES OF 300 MG A DAY^ ORAL REDUCED DOSAGE - SEE IMAGE
     Route: 048
     Dates: start: 20030101, end: 20030701
  2. EFFEXOR [Suspect]
     Dosage: ^INCREASED DOSES OF 300 MG A DAY^ ORAL REDUCED DOSAGE - SEE IMAGE
     Route: 048
     Dates: start: 20030701, end: 20030901
  3. PAROXETINE HCL [Suspect]
     Dosage: ORAL INCREASED DOSAGE UNKNOWN
     Route: 048
     Dates: start: 20000201, end: 20020501
  4. PAROXETINE HCL [Suspect]
     Dosage: ORAL INCREASED DOSAGE UNKNOWN
     Route: 048
     Dates: start: 20020501

REACTIONS (5)
  - CONDITION AGGRAVATED [None]
  - PHYSICAL ASSAULT [None]
  - SUICIDAL IDEATION [None]
  - SUICIDE ATTEMPT [None]
  - THINKING ABNORMAL [None]
